FAERS Safety Report 9021958 (Version 1)
Quarter: 2013Q1

REPORT INFORMATION
  Report Type: Spontaneous
  Country: US (occurrence: US)
  Receive Date: 20130118
  Receipt Date: 20130118
  Transmission Date: 20140127
  Serious: Yes (Death)
  Sender: FDA-Public Use
  Company Number: US-JNJFOC-20130106649

PATIENT
  Age: 3 Decade
  Sex: Female

DRUGS (12)
  1. CYCLOBENZAPRINE [Suspect]
     Indication: SUICIDE ATTEMPT
     Route: 048
  2. VITAMIN D [Suspect]
     Indication: SUICIDE ATTEMPT
     Route: 048
  3. ACETAMINOPHEN\HYDROCODONE [Suspect]
     Indication: SUICIDE ATTEMPT
     Route: 048
  4. NICARDIPINE [Suspect]
     Indication: SUICIDE ATTEMPT
     Route: 048
  5. ETHANOL [Suspect]
     Indication: SUICIDE ATTEMPT
     Route: 048
  6. METOPROLOL [Suspect]
     Indication: SUICIDE ATTEMPT
     Route: 048
  7. INSULIN [Suspect]
     Indication: SUICIDE ATTEMPT
     Route: 048
  8. METFORMIN [Suspect]
     Indication: SUICIDE ATTEMPT
     Route: 048
  9. LISINOPRIL [Suspect]
     Indication: SUICIDE ATTEMPT
     Route: 048
  10. HYDROCHLOROTHIAZIDE [Suspect]
     Indication: SUICIDE ATTEMPT
     Route: 048
  11. CLONIDINE [Suspect]
     Indication: SUICIDE ATTEMPT
     Route: 048
  12. AMOXICILLIN [Suspect]
     Indication: SUICIDE ATTEMPT
     Route: 048

REACTIONS (1)
  - Toxicity to various agents [Fatal]
